FAERS Safety Report 14728762 (Version 1)
Quarter: 2018Q2

REPORT INFORMATION
  Report Type: Spontaneous
  Country: JP (occurrence: JP)
  Receive Date: 20180406
  Receipt Date: 20180406
  Transmission Date: 20180711
  Serious: Yes (Other)
  Sender: FDA-Public Use
  Company Number: JP-BAYER-2018-061595

PATIENT
  Age: 70 Year
  Sex: Male

DRUGS (3)
  1. MINOMYCIN [Concomitant]
     Active Substance: MINOCYCLINE HYDROCHLORIDE
  2. CIPROXAN 200 MG [Suspect]
     Active Substance: CIPROFLOXACIN
     Route: 048
  3. RIFAMPICIN [Concomitant]
     Active Substance: RIFAMPIN

REACTIONS (2)
  - Pancytopenia [None]
  - Blast cells present [None]
